FAERS Safety Report 25046189 (Version 1)
Quarter: 2025Q1

REPORT INFORMATION
  Report Type: Report from Study
  Country: US (occurrence: US)
  Receive Date: 20250306
  Receipt Date: 20250306
  Transmission Date: 20250409
  Serious: Yes (Other)
  Sender: MYLAN
  Company Number: US-MYLANLABS-2025M1019242

PATIENT

DRUGS (2)
  1. DOXORUBICIN [Suspect]
     Active Substance: DOXORUBICIN
     Indication: Hepatocellular carcinoma
  2. MITOMYCIN C [Suspect]
     Active Substance: MITOMYCIN
     Indication: Hepatocellular carcinoma

REACTIONS (1)
  - Hepatic necrosis [Unknown]
